FAERS Safety Report 7046790-3 (Version None)
Quarter: 2010Q4

REPORT INFORMATION
  Report Type: 
  Country: None (occurrence: None)
  Receive Date: 20101007
  Receipt Date: 20100928
  Transmission Date: 20110411
  Serious: Yes (Hospitalization, Other)
  Sender: FDA-Public Use
  Company Number: 008769

PATIENT
  Sex: Female
  Weight: 63 kg

DRUGS (2)
  1. NEUPRO [Suspect]
     Indication: PARKINSON'S DISEASE
     Dosage: (6 MG QD CUTANEOUS)
     Route: 003
     Dates: start: 20090310
  2. MADOPAR /00349201/ [Concomitant]

REACTIONS (8)
  - ALVEOLITIS [None]
  - DRUG INTOLERANCE [None]
  - GASTROINTESTINAL DISORDER [None]
  - GRANULOMA [None]
  - LUNG DISORDER [None]
  - PLEURAL EFFUSION [None]
  - SARCOIDOSIS [None]
  - TUBERCULOSIS [None]
